FAERS Safety Report 11148533 (Version 3)
Quarter: 2015Q4

REPORT INFORMATION
  Report Type: Spontaneous
  Country: IT (occurrence: IT)
  Receive Date: 20150529
  Receipt Date: 20151224
  Transmission Date: 20160304
  Serious: Yes (Hospitalization)
  Sender: FDA-Public Use
  Company Number: IT-PFIZER INC-2015178322

PATIENT
  Age: 11 Year
  Sex: Male
  Weight: 33 kg

DRUGS (16)
  1. DOMPERIDONE [Concomitant]
     Active Substance: DOMPERIDONE
     Dosage: 10 MG, UNK
     Route: 048
  2. ANTRA [Concomitant]
     Active Substance: OMEPRAZOLE
     Dosage: 40 MG, UNK
     Route: 048
  3. CREON [Concomitant]
     Active Substance: PANCRELIPASE AMYLASE\PANCRELIPASE LIPASE\PANCRELIPASE PROTEASE
     Dosage: 40 IU, UNK
     Route: 048
  4. VFEND [Suspect]
     Active Substance: VORICONAZOLE
     Dosage: 200 MG, DAILY
     Route: 048
     Dates: start: 20110617
  5. PULMOZYME [Concomitant]
     Active Substance: DORNASE ALFA
     Dosage: 1 DF, UNK
     Route: 045
  6. GASTROGEL [Concomitant]
     Active Substance: ALUMINUM HYDROXIDE\MAGNESIUM HYDROXIDE\MAGNESIUM TRISILICATE
     Dosage: 4 G, UNK
     Route: 048
  7. GAVISCON [Concomitant]
     Active Substance: ALUMINUM HYDROXIDE\MAGNESIUM CARBONATE
     Dosage: 30 ML, UNK
     Route: 048
  8. DELTACORTENE [Concomitant]
     Active Substance: PREDNISONE
  9. MONTEGEN [Concomitant]
     Active Substance: MONTELUKAST SODIUM
     Dosage: 10 MG, UNK
  10. DIAGRAN [Concomitant]
  11. VFEND [Suspect]
     Active Substance: VORICONAZOLE
     Indication: SCEDOSPORIUM INFECTION
     Dosage: 400 MG, DAILY
     Route: 048
     Dates: start: 20110301
  12. VFEND [Suspect]
     Active Substance: VORICONAZOLE
     Dosage: 100 MG, DAILY
     Route: 048
     Dates: start: 20110629, end: 20110801
  13. DEURSIL [Concomitant]
     Active Substance: URSODIOL
     Dosage: 3 DF, UNK
  14. FANTOMALT [Concomitant]
  15. KONAKION [Concomitant]
     Active Substance: PHYTONADIONE
  16. MCT [Concomitant]

REACTIONS (6)
  - Balance disorder [Recovered/Resolved]
  - Sleep disorder [Recovered/Resolved]
  - Photosensitivity reaction [Recovered/Resolved]
  - Headache [Recovered/Resolved]
  - Peripheral swelling [Recovered/Resolved]
  - Abdominal pain [Recovered/Resolved]

NARRATIVE: CASE EVENT DATE: 20110315
